FAERS Safety Report 11298394 (Version 1)
Quarter: 2015Q3

REPORT INFORMATION
  Report Type: Spontaneous
  Country: US (occurrence: US)
  Receive Date: 20150722
  Receipt Date: 20150722
  Transmission Date: 20151125
  Serious: No
  Sender: FDA-Public Use
  Company Number: US-ELI_LILLY_AND_COMPANY-US201110001387

PATIENT
  Sex: Male

DRUGS (1)
  1. EFFIENT [Suspect]
     Active Substance: PRASUGREL HYDROCHLORIDE

REACTIONS (6)
  - Amnesia [Unknown]
  - Fatigue [Unknown]
  - Sluggishness [Unknown]
  - Jaw disorder [Unknown]
  - Confusional state [Unknown]
  - Respiratory disorder [Unknown]
